FAERS Safety Report 9736983 (Version 2)
Quarter: 2015Q3

REPORT INFORMATION
  Report Type: Spontaneous
  Country: US (occurrence: US)
  Receive Date: 20131206
  Receipt Date: 20150804
  Transmission Date: 20151125
  Serious: Yes (Hospitalization)
  Sender: FDA-Public Use
  Company Number: US-GILEAD-2009-0023069

PATIENT
  Age: 73 Year
  Sex: Female
  Weight: 101.6 kg

DRUGS (17)
  1. LETAIRIS [Suspect]
     Active Substance: AMBRISENTAN
     Indication: PULMONARY ARTERIAL HYPERTENSION
     Route: 048
     Dates: start: 20090624
  2. LOTREL [Concomitant]
     Active Substance: AMLODIPINE BESYLATE\BENAZEPRIL HYDROCHLORIDE
  3. GLIMEPIRIDE. [Concomitant]
     Active Substance: GLIMEPIRIDE
  4. CALCIUM PLUS [Concomitant]
  5. VITAMIN E [Concomitant]
     Active Substance: .ALPHA.-TOCOPHEROL
  6. FUROSEMIDE. [Concomitant]
     Active Substance: FUROSEMIDE
  7. ADVAIR HFA [Concomitant]
     Active Substance: FLUTICASONE PROPIONATE\SALMETEROL XINAFOATE
  8. ACTOS [Concomitant]
     Active Substance: PIOGLITAZONE HYDROCHLORIDE
  9. ALBUTEROL. [Concomitant]
     Active Substance: ALBUTEROL
  10. CALCIUM +D [Concomitant]
     Active Substance: CALCIUM\VITAMIN D
  11. VITAMIN B12 [Concomitant]
     Active Substance: CYANOCOBALAMIN
  12. WARFARIN [Concomitant]
     Active Substance: WARFARIN
  13. K-DUR [Concomitant]
     Active Substance: POTASSIUM CHLORIDE
  14. LOVASTATIN. [Concomitant]
     Active Substance: LOVASTATIN
  15. METFORMIN HCL [Concomitant]
     Active Substance: METFORMIN HYDROCHLORIDE
  16. CLONIDINE. [Concomitant]
     Active Substance: CLONIDINE
  17. HYDRALAZINE [Concomitant]
     Active Substance: HYDRALAZINE HYDROCHLORIDE

REACTIONS (1)
  - Swelling [Unknown]
